FAERS Safety Report 8780503 (Version 1)
Quarter: 2012Q4

REPORT INFORMATION
  Report Type: Spontaneous
  Country: US (occurrence: None)
  Receive Date: 20120828
  Receipt Date: 20120828
  Transmission Date: 20130627
  Serious: No
  Sender: FDA-Public Use
  Company Number: 2012-00148

PATIENT
  Age: 63 Year
  Sex: Female
  Weight: 77.11 kg

DRUGS (4)
  1. ZICAM [Suspect]
     Route: 045
     Dates: start: 20120806, end: 20120807
  2. DIOVAN [Concomitant]
  3. VYTORIN [Concomitant]
  4. SINUTAB [Concomitant]

REACTIONS (2)
  - Dysgeusia [None]
  - Parosmia [None]
